FAERS Safety Report 5521001-6 (Version None)
Quarter: 2007Q4

REPORT INFORMATION
  Report Type: 
  Country: None (occurrence: None)
  Receive Date: 20071119
  Receipt Date: 20071112
  Transmission Date: 20080405
  Serious: Yes (Other)
  Sender: FDA-Public Use
  Company Number: FR-ROCHE-514803

PATIENT
  Age: 70 Year
  Sex: Female
  Weight: 52 kg

DRUGS (4)
  1. BONIVA [Suspect]
     Indication: OSTEOPOROSIS
     Route: 048
     Dates: start: 20070427, end: 20070701
  2. FLECAINIDE ACETATE [Concomitant]
     Indication: ARRHYTHMIA
     Dosage: DRUG REPORTED AS FLECAINE LP. DOSE: 1 DOSE DAILY.
     Route: 048
     Dates: start: 20070301
  3. ACTONEL [Concomitant]
     Indication: OSTEOPOROSIS
     Dosage: DRUG: ACTONEL 35. DOSE: 1 DOSE PER WEEK. RECEIVED FOR MORE THAN 4 YEARS
     Route: 048
     Dates: end: 20070101
  4. LEVOTHYROXINE SODIUM [Concomitant]
     Indication: HYPOTHYROIDISM
     Dosage: DRUG: LEVOTHYROX 50. DOSE: 1 DOSE DAILY. RECEIVED FROM MORE THAN 10 YEARS
     Route: 048

REACTIONS (2)
  - HYPOACUSIS [None]
  - VISION BLURRED [None]
